FAERS Safety Report 7234641-3 (Version None)
Quarter: 2011Q1

REPORT INFORMATION
  Report Type: 
  Country: None (occurrence: None)
  Receive Date: 20110120
  Receipt Date: 20110110
  Transmission Date: 20110831
  Serious: Yes (Hospitalization)
  Sender: FDA-Public Use
  Company Number: US-BIOGENIDEC-2010BI042392

PATIENT
  Age: 64 Year
  Sex: Female

DRUGS (1)
  1. TYSABRI [Suspect]
     Indication: MULTIPLE SCLEROSIS
     Route: 042
     Dates: start: 20100128

REACTIONS (12)
  - FATIGUE [None]
  - FLUSHING [None]
  - ANAEMIA [None]
  - BRONCHITIS [None]
  - WHEEZING [None]
  - PNEUMONIA [None]
  - MENTAL IMPAIRMENT [None]
  - CANDIDIASIS [None]
  - INFECTION [None]
  - FALL [None]
  - GAIT DISTURBANCE [None]
  - MUSCULAR WEAKNESS [None]
